FAERS Safety Report 18015487 (Version 4)
Quarter: 2020Q3

REPORT INFORMATION
  Report Type: Spontaneous
  Country: NO (occurrence: NO)
  Receive Date: 20200713
  Receipt Date: 20200902
  Transmission Date: 20201104
  Serious: Yes (Hospitalization)
  Sender: FDA-Public Use
  Company Number: NO-CELGENEUS-NOR-20200701453

PATIENT
  Age: 59 Year
  Sex: Male
  Weight: 80 kg

DRUGS (111)
  1. ABRAXANE [Suspect]
     Active Substance: PACLITAXEL
     Dosage: 125 MG/M2
     Route: 041
     Dates: start: 20190319, end: 20190319
  2. ABRAXANE [Suspect]
     Active Substance: PACLITAXEL
     Dosage: 125 MG/M2
     Route: 041
     Dates: start: 20200428, end: 20200428
  3. OLECLUMAB. [Suspect]
     Active Substance: OLECLUMAB
     Dosage: 3000 MILLIGRAM
     Route: 042
     Dates: start: 20191002, end: 20191002
  4. GEMCITABINE. [Suspect]
     Active Substance: GEMCITABINE
     Indication: PANCREATIC CARCINOMA METASTATIC
     Dosage: 1000 MG/M2
     Route: 065
     Dates: start: 20190218, end: 20190218
  5. GEMCITABINE. [Suspect]
     Active Substance: GEMCITABINE
     Dosage: 1000 MG/M2
     Route: 065
     Dates: start: 20190416, end: 20190416
  6. GEMCITABINE. [Suspect]
     Active Substance: GEMCITABINE
     Dosage: 1000 MG/M2
     Route: 065
     Dates: start: 20191217, end: 20191217
  7. GEMCITABINE. [Suspect]
     Active Substance: GEMCITABINE
     Dosage: 1000 MG/M2
     Route: 065
     Dates: start: 20200303, end: 20200303
  8. GEMCITABINE. [Suspect]
     Active Substance: GEMCITABINE
     Dosage: 1000 MG/M2
     Route: 065
     Dates: start: 20200526, end: 20200526
  9. GEMCITABINE. [Suspect]
     Active Substance: GEMCITABINE
     Dosage: 1000 MG/M2
     Route: 065
     Dates: start: 20200623, end: 20200623
  10. DEXAMETHASONE. [Concomitant]
     Active Substance: DEXAMETHASONE
     Indication: PROPHYLAXIS OF NAUSEA AND VOMITING
     Route: 048
     Dates: start: 20190218
  11. FRAGMIN [Concomitant]
     Active Substance: DALTEPARIN SODIUM
     Indication: THROMBOSIS PROPHYLAXIS
     Dosage: 130 IU/KILOGRAM
     Route: 058
     Dates: start: 20200219
  12. ABRAXANE [Suspect]
     Active Substance: PACLITAXEL
     Dosage: 125 MG/M2
     Route: 041
     Dates: start: 20191105, end: 20191105
  13. ABRAXANE [Suspect]
     Active Substance: PACLITAXEL
     Dosage: 125 MG/M2
     Route: 041
     Dates: start: 20200414, end: 20200414
  14. ABRAXANE [Suspect]
     Active Substance: PACLITAXEL
     Dosage: 125 MG/M2
     Route: 041
     Dates: start: 20200609, end: 20200609
  15. ABRAXANE [Suspect]
     Active Substance: PACLITAXEL
     Dosage: 125 MG/M2
     Route: 041
     Dates: start: 20200623, end: 20200623
  16. OLECLUMAB. [Suspect]
     Active Substance: OLECLUMAB
     Dosage: 3000 MILLIGRAM
     Route: 042
     Dates: start: 20190402, end: 20190402
  17. GEMCITABINE. [Suspect]
     Active Substance: GEMCITABINE
     Dosage: 1000 MG/M2
     Route: 065
     Dates: start: 20200110, end: 20200110
  18. LONQUEX [Concomitant]
     Active Substance: LIPEGFILGRASTIM
     Indication: PROPHYLAXIS
     Route: 058
     Dates: start: 20190814
  19. ABRAXANE [Suspect]
     Active Substance: PACLITAXEL
     Dosage: 125 MG/M2
     Route: 041
     Dates: start: 20190305, end: 20190305
  20. ABRAXANE [Suspect]
     Active Substance: PACLITAXEL
     Dosage: 125 MG/M2
     Route: 041
     Dates: start: 20190430, end: 20190430
  21. ABRAXANE [Suspect]
     Active Substance: PACLITAXEL
     Dosage: 125 MG/M2
     Route: 041
     Dates: start: 20191016, end: 20191016
  22. ABRAXANE [Suspect]
     Active Substance: PACLITAXEL
     Dosage: 125 MG/M2
     Route: 041
     Dates: start: 20191210, end: 20191210
  23. ABRAXANE [Suspect]
     Active Substance: PACLITAXEL
     Dosage: 125 MG/M2
     Route: 041
     Dates: start: 20191217, end: 20191217
  24. ABRAXANE [Suspect]
     Active Substance: PACLITAXEL
     Dosage: 125 MG/M2
     Route: 041
     Dates: start: 20200102, end: 20200102
  25. ABRAXANE [Suspect]
     Active Substance: PACLITAXEL
     Dosage: 125 MG/M2
     Route: 041
     Dates: start: 20200120, end: 20200120
  26. ABRAXANE [Suspect]
     Active Substance: PACLITAXEL
     Dosage: 125 MG/M2
     Route: 041
     Dates: start: 20200211, end: 20200211
  27. ABRAXANE [Suspect]
     Active Substance: PACLITAXEL
     Dosage: 125 MG/M2
     Route: 041
     Dates: start: 20200303, end: 20200303
  28. OLECLUMAB. [Suspect]
     Active Substance: OLECLUMAB
     Dosage: 3000 MILLIGRAM
     Route: 042
     Dates: start: 20190806, end: 20190806
  29. OLECLUMAB. [Suspect]
     Active Substance: OLECLUMAB
     Dosage: 3000 MILLIGRAM
     Route: 042
     Dates: start: 20200204, end: 20200204
  30. DURVALUMAB. [Suspect]
     Active Substance: DURVALUMAB
     Indication: PANCREATIC CARCINOMA METASTATIC
     Dosage: 1500 MILLIGRAM
     Route: 042
     Dates: start: 20190218, end: 20200526
  31. GEMCITABINE. [Suspect]
     Active Substance: GEMCITABINE
     Dosage: 1000 MG/M2
     Route: 065
     Dates: start: 20191002, end: 20191002
  32. GEMCITABINE. [Suspect]
     Active Substance: GEMCITABINE
     Dosage: 1000 MG/M2
     Route: 065
     Dates: start: 20191009, end: 20191009
  33. GEMCITABINE. [Suspect]
     Active Substance: GEMCITABINE
     Dosage: 1000 MG/M2
     Route: 065
     Dates: start: 20200428, end: 20200428
  34. FURIX [Concomitant]
     Indication: OEDEMA
     Route: 048
     Dates: start: 20200126
  35. ABRAXANE [Suspect]
     Active Substance: PACLITAXEL
     Dosage: 125 MG/M2
     Route: 041
     Dates: start: 20190521, end: 20190521
  36. ABRAXANE [Suspect]
     Active Substance: PACLITAXEL
     Dosage: 125 MG/M2
     Route: 041
     Dates: start: 20190618, end: 20190618
  37. ABRAXANE [Suspect]
     Active Substance: PACLITAXEL
     Dosage: 125 MG/M2
     Route: 041
     Dates: start: 20190716, end: 20190716
  38. ABRAXANE [Suspect]
     Active Substance: PACLITAXEL
     Dosage: 125 MG/M2
     Route: 041
     Dates: start: 20191009, end: 20191009
  39. ABRAXANE [Suspect]
     Active Substance: PACLITAXEL
     Dosage: 125 MG/M2
     Route: 041
     Dates: start: 20191119, end: 20191119
  40. OLECLUMAB. [Suspect]
     Active Substance: OLECLUMAB
     Dosage: 3000 MILLIGRAM
     Route: 042
     Dates: start: 20190303, end: 20190303
  41. OLECLUMAB. [Suspect]
     Active Substance: OLECLUMAB
     Dosage: 3000 MILLIGRAM
     Route: 042
     Dates: start: 20190319, end: 20190319
  42. OLECLUMAB. [Suspect]
     Active Substance: OLECLUMAB
     Dosage: 3000 MILLIGRAM
     Route: 042
     Dates: start: 20200303, end: 20200303
  43. OLECLUMAB. [Suspect]
     Active Substance: OLECLUMAB
     Dosage: 3000 MILLIGRAM
     Route: 042
     Dates: start: 20200526, end: 20200526
  44. GEMCITABINE. [Suspect]
     Active Substance: GEMCITABINE
     Dosage: 1000 MG/M2
     Route: 065
     Dates: start: 20190225, end: 20190225
  45. GEMCITABINE. [Suspect]
     Active Substance: GEMCITABINE
     Dosage: 1000 MG/M2
     Route: 065
     Dates: start: 20190806, end: 20190806
  46. GEMCITABINE. [Suspect]
     Active Substance: GEMCITABINE
     Dosage: 1000 MG/M2
     Route: 065
     Dates: start: 20200120, end: 20200120
  47. GEMCITABINE. [Suspect]
     Active Substance: GEMCITABINE
     Dosage: 1000 MG/M2
     Route: 065
     Dates: start: 20200204, end: 20200204
  48. GEMCITABINE. [Suspect]
     Active Substance: GEMCITABINE
     Dosage: 1000 MG/M2
     Route: 065
     Dates: start: 20200512, end: 20200512
  49. GEMCITABINE. [Suspect]
     Active Substance: GEMCITABINE
     Dosage: 1000 MG/M2
     Route: 065
     Dates: start: 20200609, end: 20200609
  50. ONDANSETRON [Concomitant]
     Active Substance: ONDANSETRON
     Indication: PROPHYLAXIS OF NAUSEA AND VOMITING
     Route: 048
     Dates: start: 20190218
  51. SOMAC [Concomitant]
     Active Substance: PANTOPRAZOLE SODIUM
     Indication: PROPHYLAXIS AGAINST GASTROINTESTINAL ULCER
     Dosage: 20 MILLIGRAM
     Route: 048
     Dates: start: 20200614
  52. ABRAXANE [Suspect]
     Active Substance: PACLITAXEL
     Indication: PANCREATIC CARCINOMA METASTATIC
     Dosage: 125 MG/M2
     Route: 041
     Dates: start: 20190218, end: 20190218
  53. ABRAXANE [Suspect]
     Active Substance: PACLITAXEL
     Dosage: 125 MG/M2
     Route: 041
     Dates: start: 20190903, end: 20190903
  54. ABRAXANE [Suspect]
     Active Substance: PACLITAXEL
     Dosage: 125 MG/M2
     Route: 041
     Dates: start: 20190910, end: 20190910
  55. ABRAXANE [Suspect]
     Active Substance: PACLITAXEL
     Dosage: 125 MG/M2
     Route: 041
     Dates: start: 20191203, end: 20191203
  56. OLECLUMAB. [Suspect]
     Active Substance: OLECLUMAB
     Dosage: 3000 MILLIGRAM
     Route: 042
     Dates: start: 20190612, end: 20190612
  57. OLECLUMAB. [Suspect]
     Active Substance: OLECLUMAB
     Dosage: 3000 MILLIGRAM
     Route: 042
     Dates: start: 20200102, end: 20200102
  58. OLECLUMAB. [Suspect]
     Active Substance: OLECLUMAB
     Dosage: 3000 MILLIGRAM
     Route: 042
     Dates: start: 20200428, end: 20200428
  59. GEMCITABINE. [Suspect]
     Active Substance: GEMCITABINE
     Dosage: 1000 MG/M2
     Route: 065
     Dates: start: 20190305, end: 20190305
  60. GEMCITABINE. [Suspect]
     Active Substance: GEMCITABINE
     Dosage: 1000 MG/M2
     Route: 065
     Dates: start: 20190402, end: 20190402
  61. GEMCITABINE. [Suspect]
     Active Substance: GEMCITABINE
     Dosage: 1000 MG/M2
     Route: 065
     Dates: start: 20190423, end: 20190423
  62. GEMCITABINE. [Suspect]
     Active Substance: GEMCITABINE
     Dosage: 1000 MG/M2
     Route: 065
     Dates: start: 20190430, end: 20190430
  63. GEMCITABINE. [Suspect]
     Active Substance: GEMCITABINE
     Dosage: 1000 MG/M2
     Route: 065
     Dates: start: 20190521, end: 20190521
  64. GEMCITABINE. [Suspect]
     Active Substance: GEMCITABINE
     Dosage: 1000 MG/M2
     Route: 065
     Dates: start: 20190709, end: 20190709
  65. GEMCITABINE. [Suspect]
     Active Substance: GEMCITABINE
     Dosage: 1000 MG/M2
     Route: 065
     Dates: start: 20191203, end: 20191203
  66. GEMCITABINE. [Suspect]
     Active Substance: GEMCITABINE
     Dosage: 1000 MG/M2
     Route: 065
     Dates: start: 20200211, end: 20200211
  67. IBUPROFEN. [Concomitant]
     Active Substance: IBUPROFEN
     Indication: PERICARDITIS
     Dosage: 1800 MILLIGRAM
     Route: 048
     Dates: start: 20200614, end: 20200623
  68. ABRAXANE [Suspect]
     Active Substance: PACLITAXEL
     Dosage: 125 MG/M2
     Route: 041
     Dates: start: 20190226, end: 20190226
  69. ABRAXANE [Suspect]
     Active Substance: PACLITAXEL
     Dosage: 125 MG/M2
     Route: 041
     Dates: start: 20190806, end: 20190806
  70. ABRAXANE [Suspect]
     Active Substance: PACLITAXEL
     Dosage: 125 MG/M2
     Route: 041
     Dates: start: 20191002, end: 20191002
  71. ABRAXANE [Suspect]
     Active Substance: PACLITAXEL
     Dosage: 125 MG/M2
     Route: 041
     Dates: start: 20200204, end: 20200204
  72. OLECLUMAB. [Suspect]
     Active Substance: OLECLUMAB
     Dosage: 3000 MILLIGRAM
     Route: 042
     Dates: start: 20191105, end: 20191105
  73. GEMCITABINE. [Suspect]
     Active Substance: GEMCITABINE
     Dosage: 1000 MG/M2
     Route: 065
     Dates: start: 20190618, end: 20190618
  74. GEMCITABINE. [Suspect]
     Active Substance: GEMCITABINE
     Dosage: 1000 MG/M2
     Route: 065
     Dates: start: 20190716, end: 20190716
  75. GEMCITABINE. [Suspect]
     Active Substance: GEMCITABINE
     Dosage: 1000 MG/M2
     Route: 065
     Dates: start: 20191210, end: 20191210
  76. GEMCITABINE. [Suspect]
     Active Substance: GEMCITABINE
     Dosage: 1000 MG/M2
     Route: 065
     Dates: start: 20200102, end: 20200102
  77. GEMCITABINE. [Suspect]
     Active Substance: GEMCITABINE
     Dosage: 1000 MG/M2
     Route: 065
     Dates: start: 20200414, end: 20200414
  78. ABRAXANE [Suspect]
     Active Substance: PACLITAXEL
     Dosage: 125 MG/M2
     Route: 041
     Dates: start: 20190325, end: 20190325
  79. ABRAXANE [Suspect]
     Active Substance: PACLITAXEL
     Dosage: 125 MG/M2
     Route: 041
     Dates: start: 20190416, end: 20190416
  80. ABRAXANE [Suspect]
     Active Substance: PACLITAXEL
     Dosage: 125 MG/M2
     Route: 041
     Dates: start: 20190423, end: 20190423
  81. ABRAXANE [Suspect]
     Active Substance: PACLITAXEL
     Dosage: 125 MG/M2
     Route: 041
     Dates: start: 20190514, end: 20190514
  82. ABRAXANE [Suspect]
     Active Substance: PACLITAXEL
     Dosage: 125 MG/M2
     Route: 041
     Dates: start: 20190612, end: 20190612
  83. ABRAXANE [Suspect]
     Active Substance: PACLITAXEL
     Dosage: 125 MG/M2
     Route: 041
     Dates: start: 20190917, end: 20190917
  84. ABRAXANE [Suspect]
     Active Substance: PACLITAXEL
     Dosage: 125 MG/M2
     Route: 041
     Dates: start: 20200110, end: 20200110
  85. ABRAXANE [Suspect]
     Active Substance: PACLITAXEL
     Dosage: 125 MG/M2
     Route: 041
     Dates: start: 20200310, end: 20200310
  86. ABRAXANE [Suspect]
     Active Substance: PACLITAXEL
     Dosage: 125 MG/M2
     Route: 041
     Dates: start: 20200526, end: 20200526
  87. OLECLUMAB. [Suspect]
     Active Substance: OLECLUMAB
     Dosage: 3000 MILLIGRAM
     Route: 042
     Dates: start: 20190305, end: 20190305
  88. OLECLUMAB. [Suspect]
     Active Substance: OLECLUMAB
     Dosage: 3000 MILLIGRAM
     Route: 042
     Dates: start: 20190514, end: 20190514
  89. OLECLUMAB. [Suspect]
     Active Substance: OLECLUMAB
     Dosage: 3000 MILLIGRAM
     Route: 042
     Dates: start: 20190709, end: 20190709
  90. OLECLUMAB. [Suspect]
     Active Substance: OLECLUMAB
     Dosage: 3000 MILLIGRAM
     Route: 042
     Dates: start: 20190903, end: 20190903
  91. OLECLUMAB. [Suspect]
     Active Substance: OLECLUMAB
     Dosage: 3000 MILLIGRAM
     Route: 042
     Dates: start: 20191203, end: 20191203
  92. GEMCITABINE. [Suspect]
     Active Substance: GEMCITABINE
     Dosage: 1000 MG/M2
     Route: 065
     Dates: start: 20190319, end: 20190319
  93. GEMCITABINE. [Suspect]
     Active Substance: GEMCITABINE
     Dosage: 1000 MG/M2
     Route: 065
     Dates: start: 20191016, end: 20191016
  94. ABRAXANE [Suspect]
     Active Substance: PACLITAXEL
     Dosage: 125 MG/M2
     Route: 041
     Dates: start: 20190402, end: 20190402
  95. ABRAXANE [Suspect]
     Active Substance: PACLITAXEL
     Dosage: 125 MG/M2
     Route: 041
     Dates: start: 20190528, end: 20190528
  96. ABRAXANE [Suspect]
     Active Substance: PACLITAXEL
     Dosage: 125 MG/M2
     Route: 041
     Dates: start: 20190625, end: 20190625
  97. ABRAXANE [Suspect]
     Active Substance: PACLITAXEL
     Dosage: 125 MG/M2
     Route: 041
     Dates: start: 20190709, end: 20190709
  98. ABRAXANE [Suspect]
     Active Substance: PACLITAXEL
     Dosage: 125 MG/M2
     Route: 041
     Dates: start: 20190813, end: 20190813
  99. ABRAXANE [Suspect]
     Active Substance: PACLITAXEL
     Dosage: 125 MG/M2
     Route: 041
     Dates: start: 20200512, end: 20200512
  100. OLECLUMAB. [Suspect]
     Active Substance: OLECLUMAB
     Indication: PANCREATIC CARCINOMA METASTATIC
     Dosage: 3000 MILLIGRAM
     Route: 042
     Dates: start: 20190218, end: 20190218
  101. OLECLUMAB. [Suspect]
     Active Substance: OLECLUMAB
     Dosage: 3000 MILLIGRAM
     Route: 042
     Dates: start: 20190416, end: 20190416
  102. OLECLUMAB. [Suspect]
     Active Substance: OLECLUMAB
     Dosage: 3000 MILLIGRAM
     Route: 042
     Dates: start: 20200331, end: 20200331
  103. GEMCITABINE. [Suspect]
     Active Substance: GEMCITABINE
     Dosage: 1000 MG/M2
     Route: 065
     Dates: start: 20190514, end: 20190514
  104. GEMCITABINE. [Suspect]
     Active Substance: GEMCITABINE
     Dosage: 1000 MG/M2
     Route: 065
     Dates: start: 20190528, end: 20190528
  105. GEMCITABINE. [Suspect]
     Active Substance: GEMCITABINE
     Dosage: 1000 MG/M2
     Route: 065
     Dates: start: 20190612, end: 20190612
  106. GEMCITABINE. [Suspect]
     Active Substance: GEMCITABINE
     Dosage: 1000 MG/M2
     Route: 065
     Dates: start: 20190625, end: 20190625
  107. GEMCITABINE. [Suspect]
     Active Substance: GEMCITABINE
     Dosage: 1000 MG/M2
     Route: 065
     Dates: start: 20190813, end: 20190813
  108. GEMCITABINE. [Suspect]
     Active Substance: GEMCITABINE
     Dosage: 1000 MG/M2
     Route: 065
     Dates: start: 20190910, end: 20190910
  109. GEMCITABINE. [Suspect]
     Active Substance: GEMCITABINE
     Dosage: 1000 MG/M2
     Route: 065
     Dates: start: 20190917, end: 20190917
  110. GEMCITABINE. [Suspect]
     Active Substance: GEMCITABINE
     Dosage: 1000 MG/M2
     Route: 065
     Dates: start: 20191119, end: 20191119
  111. KOLKISIN [Concomitant]
     Indication: PERICARDITIS
     Dosage: 1 MILLIGRAM
     Route: 048
     Dates: start: 20200614

REACTIONS (1)
  - Glomerulonephritis [Not Recovered/Not Resolved]

NARRATIVE: CASE EVENT DATE: 20200625
